FAERS Safety Report 6663910-0 (Version None)
Quarter: 2010Q2

REPORT INFORMATION
  Report Type: 
  Country: None (occurrence: None)
  Receive Date: 20100401
  Receipt Date: 20100319
  Transmission Date: 20101027
  Serious: Yes (Other)
  Sender: FDA-Public Use
  Company Number: US-WATSON-2010-03915

PATIENT
  Age: 28 Year
  Sex: Female

DRUGS (1)
  1. HYDROCODONE BITARTRATE AND ACETAMINOPHEN [Suspect]
     Indication: PAIN
     Dosage: 20-40 TABS PO A DAY
     Route: 048
     Dates: start: 20080101

REACTIONS (5)
  - DEPENDENCE [None]
  - DEPRESSION [None]
  - DIARRHOEA [None]
  - TREMOR [None]
  - VOMITING [None]
